FAERS Safety Report 24996636 (Version 2)
Quarter: 2025Q2

REPORT INFORMATION
  Report Type: Spontaneous
  Country: BR (occurrence: BR)
  Receive Date: 20250221
  Receipt Date: 20250401
  Transmission Date: 20250717
  Serious: Yes (Other)
  Sender: SANDOZ
  Company Number: BR-SANDOZ-SDZ2025BR011052

PATIENT
  Age: 71 Year
  Sex: Female
  Weight: 75 kg

DRUGS (2)
  1. FILGRASTIM [Suspect]
     Active Substance: FILGRASTIM
     Indication: Neutropenia
     Dosage: 300MCG/1X A DAY FOR 5 DAYS
     Route: 058
     Dates: start: 20240914, end: 20240918
  2. FILGRASTIM [Suspect]
     Active Substance: FILGRASTIM
     Indication: Chemotherapy
     Route: 065
     Dates: start: 20240913

REACTIONS (2)
  - Neutropenia [Unknown]
  - Drug ineffective [Unknown]

NARRATIVE: CASE EVENT DATE: 20240926
